FAERS Safety Report 7577215-7 (Version None)
Quarter: 2011Q2

REPORT INFORMATION
  Report Type: 
  Country: None (occurrence: None)
  Receive Date: 20110628
  Receipt Date: 20110126
  Transmission Date: 20111010
  Serious: Yes (Hospitalization, Other)
  Sender: FDA-Public Use
  Company Number: US-BAYER-201030732NA

PATIENT
  Age: 28 Year
  Sex: Female
  Weight: 62.132 kg

DRUGS (21)
  1. VALTREX [Concomitant]
     Dosage: 1 TAB FOR 10 DAYS
     Route: 048
     Dates: start: 20050916
  2. VALTREX [Concomitant]
     Dosage: 1 TAB FOR 10 DAYS
     Route: 048
     Dates: start: 20051204
  3. AMOXICILLIN [Concomitant]
     Dosage: 500 MG (DAILY DOSE), , ORAL
     Route: 048
     Dates: start: 20070731
  4. HYDROCORTISONE [Concomitant]
     Dosage: 2.5 % (DAILY DOSE), , TOPICAL
     Route: 061
     Dates: start: 20071212
  5. ZAZOLE [Concomitant]
     Dosage: 0.4 % (DAILY DOSE), , VAGINAL
     Route: 067
     Dates: start: 20071219
  6. PREVACID [Concomitant]
  7. VALTREX [Concomitant]
     Dosage: 1 TAB FOR 10 DAYS
     Route: 048
     Dates: start: 20070622
  8. TUMS [CALCIUM CARBONATE] [Concomitant]
  9. DROSPIRENONE AND ETHINYL ESTRADIOL [Suspect]
     Indication: ORAL CONTRACEPTION
     Route: 048
     Dates: start: 20000101, end: 20080101
  10. VALTREX [Concomitant]
     Dosage: 1 TAB FOR 10 DAYS
     Route: 048
     Dates: start: 20060313
  11. CHLORPHEN.MA.W/PHENYLEPH.HCL/DEX.METHORP.HBR [Concomitant]
     Dosage: 2 TEASPOONS
     Route: 048
     Dates: start: 20070925
  12. FLUCONAZOLE [Concomitant]
     Dosage: 200 MG (DAILY DOSE), , ORAL
     Route: 048
     Dates: start: 20071212
  13. YASMIN [Suspect]
  14. AZITHROMYCIN [Concomitant]
     Dosage: 250 MG (DAILY DOSE), , ORAL
     Route: 048
     Dates: start: 20080107
  15. YASMIN [Suspect]
     Indication: MENSTRUAL CYCLE MANAGEMENT
     Route: 048
     Dates: start: 20000101, end: 20080101
  16. PROMETHAZINE DM SYRUP [Concomitant]
     Dosage: 2 TEASPOONS
     Route: 048
     Dates: start: 20080107
  17. GAVISCON [Concomitant]
  18. YAZ [Suspect]
     Indication: ORAL CONTRACEPTION
     Route: 048
     Dates: start: 20000101, end: 20080101
  19. VALTREX [Concomitant]
     Indication: HERPES VIRUS INFECTION
     Dates: start: 20060101
  20. PSEUDOEPHEDR.HCL W/BROMPHENIRA./DEXTROMETHO. [Concomitant]
     Dosage: 2 TEASPOON EVERY 4 HRS.
     Route: 048
     Dates: start: 20060309
  21. CEFDINIR [Concomitant]
     Dosage: 300 MG (DAILY DOSE), , ORAL
     Route: 048
     Dates: start: 20070925

REACTIONS (8)
  - CHOLECYSTITIS [None]
  - ABDOMINAL PAIN [None]
  - NAUSEA [None]
  - GALLBLADDER CHOLESTEROLOSIS [None]
  - MIGRAINE [None]
  - AKINESIA [None]
  - DIARRHOEA [None]
  - PINEAL GLAND CYST [None]
